FAERS Safety Report 8377180-9 (Version None)
Quarter: 2012Q2

REPORT INFORMATION
  Report Type: 
  Country: None (occurrence: None)
  Receive Date: 20120521
  Receipt Date: 20120515
  Transmission Date: 20120825
  Serious: Yes (Hospitalization, Other)
  Sender: FDA-Public Use
  Company Number: IE-008285

PATIENT
  Age: 66 Year
  Sex: Male

DRUGS (2)
  1. FIRMAGON [Suspect]
     Indication: PROSTATE CANCER
     Dosage: (240 MG 1X SUBCUTANEOUS) ; (80 MG 1X SUBCUTANEOUS)
     Route: 058
     Dates: start: 20100101
  2. FIRMAGON [Suspect]
     Indication: PROSTATE CANCER
     Dosage: (240 MG 1X SUBCUTANEOUS) ; (80 MG 1X SUBCUTANEOUS)
     Route: 058
     Dates: start: 20101015, end: 20101015

REACTIONS (4)
  - WRONG TECHNIQUE IN DRUG USAGE PROCESS [None]
  - INJECTION SITE ABSCESS [None]
  - ABDOMINAL WALL ABSCESS [None]
  - CELLULITIS [None]
